FAERS Safety Report 6173877-X (Version None)
Quarter: 2009Q2

REPORT INFORMATION
  Report Type: 
  Country: None (occurrence: None)
  Receive Date: 20090428
  Receipt Date: 20090222
  Transmission Date: 20091009
  Serious: Yes (Life-Threatening)
  Sender: FDA-Public Use
  Company Number: 2009040125

PATIENT
  Age: 69 Year
  Sex: Male

DRUGS (5)
  1. VOLUVEN [Suspect]
     Indication: SEPTIC SHOCK
  2. SOCIUM CHLORIDE (SODIUM CHLORIDE) [Concomitant]
  3. AMOXICILLING.CLAVULANIC ACID (AMOXI-CLAVULANICO) (AMOXI-CLAVULANICO) [Concomitant]
  4. CLARITHROMYCIN [Concomitant]
  5. MEROPENEM (MEROPENEM) (MEROPENEM) [Concomitant]

REACTIONS (3)
  - NEPHROTIC SYNDROME [None]
  - RENAL FAILURE ACUTE [None]
  - RENAL FAILURE CHRONIC [None]
